FAERS Safety Report 12321346 (Version 1)
Quarter: 2016Q2

REPORT INFORMATION
  Report Type: Spontaneous
  Country: US (occurrence: US)
  Receive Date: 20160502
  Receipt Date: 20160502
  Transmission Date: 20160815
  Serious: No
  Sender: FDA-Public Use
  Company Number: US-HORIZON-DUE-0070-2016

PATIENT
  Sex: Female

DRUGS (10)
  1. DUEXIS [Suspect]
     Active Substance: FAMOTIDINE\IBUPROFEN
     Indication: ARTHRALGIA
     Dosage: TID
     Dates: start: 20160322
  2. HUMALOG [Concomitant]
     Active Substance: INSULIN LISPRO
  3. VITAMIN B12 [Concomitant]
     Active Substance: CYANOCOBALAMIN
  4. VITAMIN D [Concomitant]
     Active Substance: CHOLECALCIFEROL
  5. GLIMEPRIDE [Concomitant]
     Active Substance: GLIMEPIRIDE
  6. LYRICA [Concomitant]
     Active Substance: PREGABALIN
  7. LORAZEPAM. [Concomitant]
     Active Substance: LORAZEPAM
  8. LEVOTHYROXINE. [Concomitant]
     Active Substance: LEVOTHYROXINE
  9. LANTUS [Concomitant]
     Active Substance: INSULIN GLARGINE
  10. VITAMIN C [Concomitant]
     Active Substance: ASCORBIC ACID

REACTIONS (1)
  - Therapy cessation [Unknown]
